FAERS Safety Report 21536301 (Version 1)
Quarter: 2022Q4

REPORT INFORMATION
  Report Type: Spontaneous
  Country: CN (occurrence: CN)
  Receive Date: 20221101
  Receipt Date: 20221101
  Transmission Date: 20230112
  Serious: Yes (Other)
  Sender: FDA-Public Use
  Company Number: CN-AMGEN-CHNSP2022184507

PATIENT
  Age: 11 Year
  Sex: Male

DRUGS (6)
  1. BLINATUMOMAB [Suspect]
     Active Substance: BLINATUMOMAB
     Indication: B precursor type acute leukaemia
     Dosage: 5 MICROGRAM/ METER SQAURE, ON DAY 1-7
     Route: 040
     Dates: start: 20211218
  2. BLINATUMOMAB [Suspect]
     Active Substance: BLINATUMOMAB
     Dosage: 15 MICROGRAM/ METER SQAURE, DAY 8-28
     Route: 040
  3. BUSULFAN [Concomitant]
     Active Substance: BUSULFAN
     Indication: B precursor type acute leukaemia
     Dosage: 0.8 MICROGRAM/KILOGRAM, ONCE EVERY 6 HOURS
     Route: 040
  4. CYCLOPHOSPHAMIDE [Concomitant]
     Active Substance: CYCLOPHOSPHAMIDE
     Indication: B precursor type acute leukaemia
     Dosage: 1.8 GRAM PER SQAURE METER
     Route: 040
  5. CYTARABINE [Concomitant]
     Active Substance: CYTARABINE
     Dosage: 4 GRAM/ METER SQAURE
     Route: 040
  6. SEMUSTINE [Concomitant]
     Active Substance: SEMUSTINE
     Indication: B precursor type acute leukaemia
     Dosage: 250 MILLIGRAM PER SQAURE METER
     Route: 048

REACTIONS (3)
  - Acute graft versus host disease in skin [Recovering/Resolving]
  - Acute lymphocytic leukaemia recurrent [Recovered/Resolved]
  - Neutrophil count decreased [Unknown]

NARRATIVE: CASE EVENT DATE: 20211201
